FAERS Safety Report 4665409-X (Version None)
Quarter: 2005Q2

REPORT INFORMATION
  Report Type: 
  Country: None (occurrence: None)
  Receive Date: 20050518
  Receipt Date: 20050518
  Transmission Date: 20051028
  Serious: Yes (Life-Threatening, Hospitalization)
  Sender: FDA-Public Use
  Company Number: None

PATIENT
  Sex: Male
  Weight: 66.4 kg

DRUGS (13)
  1. POLYGAM S/D [Suspect]
     Indication: BONE MARROW TRANSPLANT
     Dosage: 30 G IV INFUSION
     Route: 042
     Dates: start: 20050510, end: 20050510
  2. POLYGAM S/D [Suspect]
     Indication: HYPOGAMMAGLOBULINAEMIA
     Dosage: 30 G IV INFUSION
     Route: 042
     Dates: start: 20050510, end: 20050510
  3. NEORAL [Concomitant]
  4. MEDROL [Concomitant]
  5. CELLCEPT [Concomitant]
  6. PENTAMIDINE INHAL [Concomitant]
  7. ABELCET [Concomitant]
  8. VALCYTE [Concomitant]
  9. ACTIGALL [Concomitant]
  10. PROTONIX [Concomitant]
  11. CREON [Concomitant]
  12. K-DUR 10 [Concomitant]
  13. SLO-MAG [Concomitant]

REACTIONS (11)
  - ANAPHYLACTIC REACTION [None]
  - BLOOD BILIRUBIN INCREASED [None]
  - BLOOD PRESSURE DECREASED [None]
  - DIZZINESS [None]
  - HYPOTENSION [None]
  - INFUSION RELATED REACTION [None]
  - LOSS OF CONSCIOUSNESS [None]
  - MENTAL STATUS CHANGES [None]
  - PYREXIA [None]
  - RENAL FAILURE [None]
  - SEPSIS [None]
